FAERS Safety Report 6356132-4 (Version None)
Quarter: 2009Q3

REPORT INFORMATION
  Report Type: 
  Country: None (occurrence: None)
  Receive Date: 20090914
  Receipt Date: 20090914
  Transmission Date: 20100115
  Serious: Yes (Other)
  Sender: FDA-Public Use
  Company Number: None

PATIENT
  Age: 21 Year
  Sex: Male
  Weight: 68.0396 kg

DRUGS (1)
  1. AMPHETAMINES [Suspect]
     Indication: ATTENTION DEFICIT/HYPERACTIVITY DISORDER
     Dosage: 10MG TWICE DAILT PO
     Route: 048
     Dates: start: 20070701, end: 20090912

REACTIONS (2)
  - ERECTILE DYSFUNCTION [None]
  - PREMATURE EJACULATION [None]
